FAERS Safety Report 14542080 (Version 1)
Quarter: 2018Q1

REPORT INFORMATION
  Report Type: Spontaneous
  Country: DE (occurrence: DE)
  Receive Date: 20180216
  Receipt Date: 20180216
  Transmission Date: 20180509
  Serious: Yes (Life-Threatening, Hospitalization)
  Sender: FDA-Public Use
  Company Number: DE-OTSUKA-DJ20126878

PATIENT
  Age: 57 Year
  Sex: Female

DRUGS (10)
  1. ORFIRIL [Suspect]
     Active Substance: VALPROATE SODIUM
     Indication: PRODUCT USED FOR UNKNOWN INDICATION
     Dosage: 500 MG, UNK
     Route: 048
     Dates: start: 20111017, end: 20111129
  2. DIAZEPAM. [Suspect]
     Active Substance: DIAZEPAM
     Indication: RESPIRATORY DEPRESSION
     Dosage: 25 MG, UNK
     Route: 048
     Dates: start: 20111012, end: 20111129
  3. CLEXANE [Concomitant]
     Active Substance: ENOXAPARIN SODIUM
     Indication: PRODUCT USED FOR UNKNOWN INDICATION
     Dosage: UNK
     Route: 065
     Dates: start: 20111124
  4. ABILIFY [Suspect]
     Active Substance: ARIPIPRAZOLE
     Indication: PRODUCT USED FOR UNKNOWN INDICATION
     Dosage: 15 MG, UNK
     Route: 048
     Dates: start: 20111011, end: 20111129
  5. NEUROCIL (LEVOMEPROMAZINE) [Suspect]
     Active Substance: LEVOMEPROMAZINE
     Indication: RESPIRATORY DEPRESSION
     Dosage: 08NOV11-16NOV11,DOSE INCREASED-100MG ONCE PER DAY ON 17NOV11.
     Route: 048
     Dates: start: 20111108
  6. L-THYROXINE [Suspect]
     Active Substance: LEVOTHYROXINE
     Indication: PRODUCT USED FOR UNKNOWN INDICATION
     Dosage: 100 ?G, UNK
     Route: 048
     Dates: start: 20111117
  7. HALDOL DECANOATE [Suspect]
     Active Substance: HALOPERIDOL DECANOATE
     Indication: PRODUCT USED FOR UNKNOWN INDICATION
     Dosage: UNK
     Route: 030
     Dates: start: 20111125
  8. BISOPROLOL [Concomitant]
     Active Substance: BISOPROLOL
     Indication: PRODUCT USED FOR UNKNOWN INDICATION
     Dosage: UNK
     Route: 065
     Dates: start: 2009
  9. LASIX [Concomitant]
     Active Substance: FUROSEMIDE
     Indication: PRODUCT USED FOR UNKNOWN INDICATION
     Dosage: 120 MG, QD
     Route: 048
     Dates: start: 2009
  10. CLOZAPINE. [Suspect]
     Active Substance: CLOZAPINE
     Indication: RESPIRATORY DEPRESSION
     Dosage: 12.5 MG, UNK
     Route: 048
     Dates: start: 20111118, end: 20111129

REACTIONS (5)
  - Pneumonia aspiration [Not Recovered/Not Resolved]
  - Blood creatine phosphokinase increased [Not Recovered/Not Resolved]
  - Psychotic disorder [Unknown]
  - Psychotic symptom [Not Recovered/Not Resolved]
  - Salivary hypersecretion [Not Recovered/Not Resolved]

NARRATIVE: CASE EVENT DATE: 2011
